FAERS Safety Report 4442885-9 (Version None)
Quarter: 2004Q3

REPORT INFORMATION
  Report Type: 
  Country: None (occurrence: None)
  Receive Date: 20040907
  Receipt Date: 20040907
  Transmission Date: 20050211
  Serious: Yes (Life-Threatening)
  Sender: FDA-Public Use
  Company Number: None

PATIENT
  Age: 63 Year
  Sex: Male

DRUGS (14)
  1. AMIDATE [Suspect]
     Indication: INDUCTION OF ANAESTHESIA
     Dosage: 0.3 MG/KG
     Dates: start: 20040616
  2. VERSED [Concomitant]
  3. FENTANYL [Concomitant]
  4. LIDOCAINE [Concomitant]
  5. SUCCINYLCHO [Concomitant]
  6. EPHEDRINE SUL CAP [Concomitant]
  7. VERAPAMIL [Concomitant]
  8. DIGOXIN [Concomitant]
  9. INSULIN [Concomitant]
  10. LOPRESSOR [Concomitant]
  11. LITHOBID [Concomitant]
  12. ZOCOR [Concomitant]
  13. DIGOXIN [Concomitant]
  14. PROZAC [Concomitant]

REACTIONS (2)
  - BLOOD PRESSURE SYSTOLIC DECREASED [None]
  - CARDIO-RESPIRATORY ARREST [None]
